FAERS Safety Report 5701849-5 (Version None)
Quarter: 2008Q2

REPORT INFORMATION
  Report Type: 
  Country: None (occurrence: None)
  Receive Date: 20080408
  Receipt Date: 20080324
  Transmission Date: 20081010
  Serious: Yes (Death)
  Sender: FDA-Public Use
  Company Number: 2008026970

PATIENT
  Age: 74 Year
  Sex: Female

DRUGS (3)
  1. FRAGMIN [Suspect]
     Indication: THROMBOSIS PROPHYLAXIS
     Dosage: INTRAVENOUS
     Route: 042
  2. HEPARIN SODIUM [Suspect]
     Dosage: INTRAVENOUS
     Route: 042
  3. ARIXTRA [Suspect]
     Dosage: SUBCUTANEOUS
     Route: 058

REACTIONS (2)
  - CEREBRAL HAEMORRHAGE [None]
  - HEPARIN-INDUCED THROMBOCYTOPENIA [None]
